FAERS Safety Report 8860710 (Version 2)
Quarter: 2012Q4

REPORT INFORMATION
  Report Type: 
  Country: US (occurrence: US)
  Receive Date: 20121025
  Receipt Date: 20121204
  Transmission Date: 20130627
  Serious: No
  Sender: FDA-Public Use
  Company Number: US-ASTRAZENECA-2012SE80342

PATIENT
  Age: 62 Year
  Sex: Female

DRUGS (2)
  1. CRESTOR [Suspect]
     Route: 048
     Dates: start: 201207
  2. NEXIUM [Suspect]
     Route: 048

REACTIONS (1)
  - Muscle spasms [Unknown]
